FAERS Safety Report 8353467-0 (Version None)
Quarter: 2012Q2

REPORT INFORMATION
  Report Type: 
  Country: None (occurrence: None)
  Receive Date: 20120511
  Receipt Date: 20110328
  Transmission Date: 20120825
  Serious: No
  Sender: FDA-Public Use
  Company Number: US-GLAXOSMITHKLINE-A0921150A

PATIENT
  Sex: Female

DRUGS (1)
  1. TYKERB [Suspect]
     Dosage: 1250MG PER DAY
     Dates: start: 20110318, end: 20110323

REACTIONS (4)
  - GAIT DISTURBANCE [None]
  - BONE PAIN [None]
  - SKIN BURNING SENSATION [None]
  - DIZZINESS [None]
